FAERS Safety Report 6156740-X (Version None)
Quarter: 2009Q2

REPORT INFORMATION
  Report Type: 
  Country: None (occurrence: None)
  Receive Date: 20090410
  Receipt Date: 20090410
  Transmission Date: 20091009
  Serious: Yes (Life-Threatening, Disabling, Other)
  Sender: FDA-Public Use
  Company Number: None

PATIENT
  Age: 49 Year
  Sex: Male
  Weight: 99.7913 kg

DRUGS (4)
  1. SEROQUEL [Suspect]
     Indication: MAJOR DEPRESSION
     Dosage: (2) 100 MG. TABLETS ONCE/DAY AT BEDTIME ORAL TABLETS
     Route: 048
     Dates: start: 20040101, end: 20090331
  2. SEROQUEL [Suspect]
     Indication: SCHIZOPHRENIA
     Dosage: (2) 100 MG. TABLETS ONCE/DAY AT BEDTIME ORAL TABLETS
     Route: 048
     Dates: start: 20040101, end: 20090331
  3. DEXTROAMPHETAMINE SULPHATE [Concomitant]
  4. ADVIL LIQUI-GELS [Concomitant]

REACTIONS (49)
  - ARTERIOSCLEROSIS [None]
  - AUTOIMMUNE DISORDER [None]
  - BACTERIAL INFECTION [None]
  - BLOOD CHOLESTEROL INCREASED [None]
  - BLOOD TRIGLYCERIDES INCREASED [None]
  - CARDIAC DISORDER [None]
  - COAGULOPATHY [None]
  - COGNITIVE DISORDER [None]
  - CONSTIPATION [None]
  - CONVULSION [None]
  - DENTAL CARIES [None]
  - DIABETES MELLITUS [None]
  - DISTURBANCE IN ATTENTION [None]
  - DIZZINESS [None]
  - DYSTONIA [None]
  - ENDOCRINE DISORDER [None]
  - FATIGUE [None]
  - FLUID IMBALANCE [None]
  - GASTROINTESTINAL DISORDER [None]
  - HEPATIC FUNCTION ABNORMAL [None]
  - HYPERGLYCAEMIA [None]
  - HYPERMETABOLISM [None]
  - HYPERSEXUALITY [None]
  - HYPERTENSION [None]
  - HYPOGLYCAEMIA [None]
  - INCREASED APPETITE [None]
  - INSOMNIA [None]
  - LACTOSE INTOLERANCE [None]
  - LUNG DISORDER [None]
  - MAJOR DEPRESSION [None]
  - MALNUTRITION [None]
  - MOTOR DYSFUNCTION [None]
  - NERVOUS SYSTEM DISORDER [None]
  - NEUROLEPTIC MALIGNANT SYNDROME [None]
  - OBSESSIVE-COMPULSIVE DISORDER [None]
  - OEDEMA [None]
  - RENAL IMPAIRMENT [None]
  - SENSORY DISTURBANCE [None]
  - SKIN DISORDER [None]
  - SOMNOLENCE [None]
  - SUICIDAL IDEATION [None]
  - TARDIVE DYSKINESIA [None]
  - TEMPERATURE REGULATION DISORDER [None]
  - TINEA PEDIS [None]
  - TOOTH DISORDER [None]
  - UNEVALUABLE EVENT [None]
  - VISUAL IMPAIRMENT [None]
  - VITAL FUNCTIONS ABNORMAL [None]
  - WEIGHT INCREASED [None]
